FAERS Safety Report 9629097 (Version 2)
Quarter: 2013Q4

REPORT INFORMATION
  Report Type: Spontaneous
  Country: US (occurrence: US)
  Receive Date: 20131017
  Receipt Date: 20131022
  Transmission Date: 20140711
  Serious: Yes (Death)
  Sender: FDA-Public Use
  Company Number: US-PFIZER INC-2013297437

PATIENT
  Age: 48 Year
  Sex: Female

DRUGS (1)
  1. SUTENT [Suspect]
     Indication: CARCINOID SYNDROME
     Dosage: 37.5 MG, UNK
     Dates: start: 20130530

REACTIONS (3)
  - Disease progression [Fatal]
  - Carcinoid syndrome [Fatal]
  - Off label use [Unknown]
